FAERS Safety Report 21022803 (Version 1)
Quarter: 2022Q2

REPORT INFORMATION
  Report Type: Spontaneous
  Country: CA (occurrence: CA)
  Receive Date: 20220629
  Receipt Date: 20220629
  Transmission Date: 20220721
  Serious: Yes (Death)
  Sender: FDA-Public Use
  Company Number: CA-PFIZER INC-202200902338

PATIENT
  Age: 78 Year
  Sex: Male

DRUGS (1)
  1. HEPARIN SODIUM [Suspect]
     Active Substance: HEPARIN SODIUM
     Dosage: UNK

REACTIONS (6)
  - Accidental death [Fatal]
  - Cerebral haemorrhage [Fatal]
  - Coma [Fatal]
  - General physical health deterioration [Fatal]
  - Pneumonia [Fatal]
  - Subdural haematoma [Fatal]
